FAERS Safety Report 22303899 (Version 1)
Quarter: 2023Q2

REPORT INFORMATION
  Report Type: Report from Study
  Country: US (occurrence: US)
  Receive Date: 20230510
  Receipt Date: 20230510
  Transmission Date: 20230721
  Serious: Yes (Other)
  Sender: FDA-Public Use
  Company Number: US-ABBVIE-22K-163-4426124-00

PATIENT
  Sex: Male
  Weight: 95.254 kg

DRUGS (3)
  1. HUMIRA [Suspect]
     Active Substance: ADALIMUMAB
     Indication: Colitis ulcerative
     Dosage: FORM STRENGTH: 40 MG
     Route: 058
     Dates: start: 202001, end: 202203
  2. HUMIRA [Suspect]
     Active Substance: ADALIMUMAB
     Dosage: FORM STRENGTH: 40 MG
     Route: 058
     Dates: start: 202206
  3. MODERNA COVID-19 VACCINE [Concomitant]
     Active Substance: ELASOMERAN
     Indication: COVID-19 immunisation
     Dosage: TIME INTERVAL: 1 TOTAL
     Route: 030

REACTIONS (11)
  - Humerus fracture [Recovered/Resolved with Sequelae]
  - Road traffic accident [Recovered/Resolved]
  - Back pain [Unknown]
  - Upper limb fracture [Not Recovered/Not Resolved]
  - Colitis ulcerative [Recovered/Resolved]
  - Shoulder fracture [Unknown]
  - Musculoskeletal stiffness [Not Recovered/Not Resolved]
  - Joint range of motion decreased [Unknown]
  - Pain in extremity [Recovering/Resolving]
  - Rash [Recovered/Resolved]
  - Skin discharge [Recovered/Resolved]

NARRATIVE: CASE EVENT DATE: 20220101
